FAERS Safety Report 11287910 (Version 1)
Quarter: 2015Q3

REPORT INFORMATION
  Report Type: Spontaneous
  Country: TR (occurrence: TR)
  Receive Date: 20150721
  Receipt Date: 20150721
  Transmission Date: 20151125
  Serious: Yes (Other)
  Sender: FDA-Public Use
  Company Number: TR-PFIZER INC-2015204208

PATIENT
  Age: 63 Year
  Sex: Male

DRUGS (5)
  1. LANSOR [Concomitant]
     Active Substance: LANSOPRAZOLE
     Dosage: ONCE DAILY (EMPTY STOMACH)
  2. SUTENT [Suspect]
     Active Substance: SUNITINIB MALATE
     Indication: RENAL CELL CARCINOMA
     Dosage: 50 MG, 1X/DAY
  3. ALDACTONE [Concomitant]
     Active Substance: SPIRONOLACTONE
     Dosage: 25 MG, 1X/DAY
  4. LASIX [Concomitant]
     Active Substance: FUROSEMIDE
     Dosage: 40 MG, TWICE WEEKLY
  5. DOXIUM [Concomitant]
     Dosage: 500 MG, 2X/DAY

REACTIONS (5)
  - Suspected counterfeit product [Unknown]
  - Disease progression [Unknown]
  - Renal cell carcinoma [Unknown]
  - Ascites [Not Recovered/Not Resolved]
  - Peripheral swelling [Recovered/Resolved]
